FAERS Safety Report 21736521 (Version 1)
Quarter: 2022Q4

REPORT INFORMATION
  Report Type: Spontaneous
  Country: CA (occurrence: CA)
  Receive Date: 20221215
  Receipt Date: 20221215
  Transmission Date: 20230112
  Serious: Yes (Other)
  Sender: FDA-Public Use
  Company Number: CA-002147023-NVSC2022CA286933

PATIENT
  Age: 53 Year
  Sex: Female

DRUGS (7)
  1. METHOTREXATE SODIUM [Suspect]
     Active Substance: METHOTREXATE SODIUM
     Indication: Product used for unknown indication
     Dosage: UNK STARTED ON FEB 2010/ APR 2010
     Route: 065
  2. CYCLOPHOSPHAMIDE [Suspect]
     Active Substance: CYCLOPHOSPHAMIDE
     Indication: Product used for unknown indication
     Dosage: UNK UNK, QMO (18 MONTHS)
     Route: 065
     Dates: start: 1990
  3. CYCLOPHOSPHAMIDE [Suspect]
     Active Substance: CYCLOPHOSPHAMIDE
     Dosage: 100 MG (DISCONTINUED DUE TO LEUKOPENIA)
     Route: 048
     Dates: start: 201004, end: 201005
  4. MYFORTIC [Suspect]
     Active Substance: MYCOPHENOLATE SODIUM
     Indication: Product used for unknown indication
     Dosage: UNK (IVIG) 35G FOR SECONDARY IMMUNODEFICIENCY
     Route: 065
     Dates: start: 201005, end: 201405
  5. MYFORTIC [Suspect]
     Active Substance: MYCOPHENOLATE SODIUM
     Dosage: UNK
     Route: 065
     Dates: start: 201107
  6. PREDNISONE [Suspect]
     Active Substance: PREDNISONE
     Indication: Product used for unknown indication
     Dosage: 25 MG
     Route: 048
  7. IMURAN [Suspect]
     Active Substance: AZATHIOPRINE
     Indication: Product used for unknown indication
     Dosage: UNK (APR 2010 FOR ONE MONTH THEN FLARED ABDOMEN)
     Route: 065

REACTIONS (4)
  - Leukopenia [Unknown]
  - Secondary immunodeficiency [Unknown]
  - Gastrointestinal disorder [Unknown]
  - Treatment failure [Unknown]
